FAERS Safety Report 7576530-0 (Version None)
Quarter: 2011Q2

REPORT INFORMATION
  Report Type: 
  Country: None (occurrence: None)
  Receive Date: 20110624
  Receipt Date: 20110624
  Transmission Date: 20111010
  Serious: Yes (Hospitalization)
  Sender: FDA-Public Use
  Company Number: None

PATIENT
  Sex: Female
  Weight: 10.6 kg

DRUGS (2)
  1. CARBOPLATIN [Suspect]
     Dosage: 360 MG
     Dates: end: 20110615
  2. THIOTEPA [Suspect]
     Dosage: 212 MG
     Dates: end: 20110615

REACTIONS (1)
  - ANAEMIA [None]
